FAERS Safety Report 25007981 (Version 2)
Quarter: 2025Q2

REPORT INFORMATION
  Report Type: Spontaneous
  Country: JP (occurrence: JP)
  Receive Date: 20250225
  Receipt Date: 20250404
  Transmission Date: 20250717
  Serious: Yes (Death, Hospitalization, Other)
  Sender: BRISTOL MYERS SQUIBB
  Company Number: JP-BRISTOL-MYERS SQUIBB COMPANY-2025-025612

PATIENT
  Age: 69 Year
  Sex: Male

DRUGS (4)
  1. AZACITIDINE [Suspect]
     Active Substance: AZACITIDINE
     Indication: Myelodysplastic syndrome
  2. AZACITIDINE [Suspect]
     Active Substance: AZACITIDINE
     Indication: Acute myeloid leukaemia
  3. VENCLEXTA [Concomitant]
     Active Substance: VENETOCLAX
     Indication: Acute myeloid leukaemia
  4. VENCLEXTA [Concomitant]
     Active Substance: VENETOCLAX

REACTIONS (6)
  - Transformation to acute myeloid leukaemia [Fatal]
  - Neutrophil count decreased [Unknown]
  - Hepatic infection [Recovering/Resolving]
  - Pneumatosis [Recovering/Resolving]
  - Platelet count decreased [Unknown]
  - Immunosuppression [Unknown]
